FAERS Safety Report 10263584 (Version 1)
Quarter: 2014Q2

REPORT INFORMATION
  Report Type: Spontaneous
  Country: US (occurrence: US)
  Receive Date: 20140626
  Receipt Date: 20140626
  Transmission Date: 20141212
  Serious: Yes (Hospitalization)
  Sender: FDA-Public Use
  Company Number: US-GILEAD-2014-0106860

PATIENT
  Age: 60 Year
  Sex: Female

DRUGS (9)
  1. LETAIRIS [Suspect]
     Indication: PULMONARY ARTERIAL HYPERTENSION
     Dosage: 5 MG, QD
     Route: 065
     Dates: start: 20140621
  2. NORVASC [Concomitant]
  3. HYDROXYZINE [Concomitant]
  4. ASPIRIN [Concomitant]
  5. ALPRAZOLAM [Concomitant]
  6. LORAZEPAM [Concomitant]
  7. AMLODIPINE [Concomitant]
  8. RANITIDINE [Concomitant]
  9. OMEPRAZOLE [Concomitant]

REACTIONS (3)
  - Pain in extremity [Recovered/Resolved]
  - Dizziness [Recovered/Resolved]
  - Skin hyperpigmentation [Unknown]
